FAERS Safety Report 22632548 (Version 1)
Quarter: 2023Q2

REPORT INFORMATION
  Report Type: Spontaneous
  Country: US (occurrence: US)
  Receive Date: 20230623
  Receipt Date: 20230623
  Transmission Date: 20230721
  Serious: No
  Sender: FDA-Public Use
  Company Number: US-GLENMARK PHARMACEUTICALS-2022GMK076535

PATIENT

DRUGS (4)
  1. CALCIPOTRIENE [Suspect]
     Active Substance: CALCIPOTRIENE
     Indication: Skin exfoliation
     Dosage: UNK, BID
     Route: 061
     Dates: start: 20221027
  2. CALCIPOTRIENE [Suspect]
     Active Substance: CALCIPOTRIENE
     Indication: Skin texture abnormal
  3. FLUOROURACIL [Concomitant]
     Active Substance: FLUOROURACIL
     Indication: Skin exfoliation
     Dosage: UNK
     Route: 061
  4. FLUOROURACIL [Concomitant]
     Active Substance: FLUOROURACIL
     Indication: Skin texture abnormal

REACTIONS (2)
  - Solar lentigo [Unknown]
  - Rash [Unknown]

NARRATIVE: CASE EVENT DATE: 20220101
